FAERS Safety Report 6801101-0 (Version None)
Quarter: 2010Q2

REPORT INFORMATION
  Report Type: 
  Country: None (occurrence: None)
  Receive Date: 20100624
  Receipt Date: 20100615
  Transmission Date: 20101027
  Serious: No
  Sender: FDA-Public Use
  Company Number: 009901

PATIENT
  Age: 75 Year
  Sex: Male
  Weight: 68.4 kg

DRUGS (5)
  1. PLETAL [Suspect]
     Indication: ARTERIOSCLEROSIS OBLITERANS
     Dosage: 50 MG, QD, ORAL
     Route: 048
     Dates: start: 20100512, end: 20100514
  2. DEPAS (ETIZOLAM) [Concomitant]
  3. OMEPRAL (OMEPRAZOLE) TABLET [Concomitant]
  4. AMLODIN OD (AMLODIPINE BESILATE) TABLET [Concomitant]
  5. GASLON N (IRSOGLADINE MALEATE) TABLET [Concomitant]

REACTIONS (6)
  - DIARRHOEA [None]
  - LACUNAR INFARCTION [None]
  - LOSS OF CONSCIOUSNESS [None]
  - PRURITUS [None]
  - TINNITUS [None]
  - TRANSIENT ISCHAEMIC ATTACK [None]
